FAERS Safety Report 5952982-4 (Version None)
Quarter: 2008Q4

REPORT INFORMATION
  Report Type: 
  Country: None (occurrence: None)
  Receive Date: 20081114
  Receipt Date: 20081103
  Transmission Date: 20090506
  Serious: Yes (Hospitalization)
  Sender: FDA-Public Use
  Company Number: US-AVENTIS-200817586US

PATIENT
  Sex: Male

DRUGS (1)
  1. KETEK [Suspect]
     Dates: start: 20040923

REACTIONS (7)
  - ABDOMINAL PAIN UPPER [None]
  - DECREASED APPETITE [None]
  - LIVER FUNCTION TEST ABNORMAL [None]
  - MESENTERIC VEIN THROMBOSIS [None]
  - NAUSEA [None]
  - OCCULT BLOOD POSITIVE [None]
  - VARICOSE VEIN [None]
